FAERS Safety Report 16641270 (Version 2)
Quarter: 2020Q1

REPORT INFORMATION
  Report Type: Report from Study
  Country: US (occurrence: US)
  Receive Date: 20190729
  Receipt Date: 20200121
  Transmission Date: 20200409
  Serious: Yes (Hospitalization, Other)
  Sender: FDA-Public Use
  Company Number: US-ROCHE-2356846

PATIENT
  Age: 48 Year
  Sex: Female

DRUGS (5)
  1. OCREVUS [Suspect]
     Active Substance: OCRELIZUMAB
     Indication: MULTIPLE SCLEROSIS
     Dosage: ON 05/JUL/2018 AND 16/JAN/2019, SHE RECEIVED OCRELIZUMAB INFUSION.?300 MG ONCE IN 2 WEEKS, THEN 600
     Route: 042
     Dates: start: 20180620
  2. MOTRIN [Concomitant]
     Active Substance: IBUPROFEN
     Dosage: AS NEEDED
     Route: 065
  3. METHYLPREDNISOLONE. [Concomitant]
     Active Substance: METHYLPREDNISOLONE
     Indication: PREMEDICATION
  4. PREDNISONE. [Concomitant]
     Active Substance: PREDNISONE
     Dosage: TAKE 1 TABLET WITH FOOD OR MILK THEN 4MG FOR 30 DAYS, THEN 2 MG FOR 30 DAYS
     Route: 065
  5. AMANTADINE. [Concomitant]
     Active Substance: AMANTADINE HYDROCHLORIDE
     Indication: FATIGUE
     Route: 065

REACTIONS (5)
  - Urinary tract infection [Unknown]
  - Nephrolithiasis [Not Recovered/Not Resolved]
  - Multiple sclerosis relapse [Unknown]
  - Asthenia [Unknown]
  - Anxiety [Unknown]

NARRATIVE: CASE EVENT DATE: 20190421
